FAERS Safety Report 8215774-1 (Version None)
Quarter: 2012Q1

REPORT INFORMATION
  Report Type: 
  Country: None (occurrence: None)
  Receive Date: 20120316
  Receipt Date: 20120307
  Transmission Date: 20120608
  Serious: Yes (Other)
  Sender: FDA-Public Use
  Company Number: US-BRISTOL-MYERS SQUIBB COMPANY-16420291

PATIENT
  Age: 61 Year
  Sex: Female
  Weight: 69 kg

DRUGS (15)
  1. FASLODEX [Concomitant]
     Dosage: RESTARTED 30DEC11
     Dates: start: 20080901
  2. DILAUDID [Concomitant]
  3. NAPROXEN (ALEVE) [Concomitant]
  4. VICODIN [Concomitant]
  5. IXEMPRA KIT [Suspect]
     Indication: BREAST CANCER METASTATIC
     Dosage: TOTAL: 3 TREATMENTS,. INTERRUPTED ON AUG11, RESUMED ON OCT11.HELD BETWEEN OCT11 AND JAN12
     Route: 042
     Dates: start: 20110601
  6. MORPHINE [Concomitant]
  7. CALCIUM + VITAMIN D [Concomitant]
  8. ATENOLOL [Concomitant]
  9. ZOMETA [Concomitant]
     Dosage: RESTARTES IN NOV1
     Dates: start: 20080901
  10. IBUPROFEN (ADVIL) [Concomitant]
  11. LYRICA [Concomitant]
     Dosage: NEXT: 9MAR12. ALSO 100MG 2 PER DAY
     Dates: start: 20110101
  12. OXYCODONE HCL [Concomitant]
  13. VALIUM [Concomitant]
  14. OXYCONTIN [Concomitant]
  15. VITAMIN TAB [Concomitant]

REACTIONS (9)
  - SPONDYLOLYSIS [None]
  - INTERVERTEBRAL DISC DEGENERATION [None]
  - URINARY TRACT INFECTION [None]
  - WEIGHT DECREASED [None]
  - MEMORY IMPAIRMENT [None]
  - SCIATICA [None]
  - NEUTROPENIA [None]
  - NEUROPATHY PERIPHERAL [None]
  - NAIL DISORDER [None]
